FAERS Safety Report 5140629-9 (Version None)
Quarter: 2006Q4

REPORT INFORMATION
  Report Type: 
  Country: None (occurrence: None)
  Receive Date: 20061025
  Receipt Date: 20061009
  Transmission Date: 20070319
  Serious: Yes (Life-Threatening, Hospitalization)
  Sender: FDA-Public Use
  Company Number: DSA_28735_2006

PATIENT
  Age: 34 Year
  Sex: Female

DRUGS (2)
  1. TAVOR [Suspect]
     Dosage: DF ONCE PO
     Route: 048
     Dates: start: 20060914, end: 20060914
  2. SEROQUEL [Suspect]
     Dosage: 10 TB ONCE PO
     Route: 048
     Dates: start: 20060914, end: 20060914

REACTIONS (4)
  - FATIGUE [None]
  - MULTIPLE DRUG OVERDOSE INTENTIONAL [None]
  - SUICIDE ATTEMPT [None]
  - TACHYCARDIA [None]
